FAERS Safety Report 4759812-7 (Version None)
Quarter: 2005Q3

REPORT INFORMATION
  Report Type: 
  Country: None (occurrence: None)
  Receive Date: 20050831
  Receipt Date: 20050831
  Transmission Date: 20060218
  Serious: Yes (Disabling, Other)
  Sender: FDA-Public Use
  Company Number: None

PATIENT
  Age: 21 Year
  Sex: Female
  Weight: 54.4316 kg

DRUGS (1)
  1. LARIAM [Suspect]
     Indication: MALARIA PROPHYLAXIS
     Dosage: 250 MG 1/WEEK BUCCAL
     Route: 002
     Dates: start: 20001226, end: 20010130

REACTIONS (13)
  - ABNORMAL BEHAVIOUR [None]
  - BIPOLAR DISORDER [None]
  - DEPRESSION [None]
  - ECONOMIC PROBLEM [None]
  - EDUCATIONAL PROBLEM [None]
  - HEART RATE INCREASED [None]
  - INSOMNIA [None]
  - LEGAL PROBLEM [None]
  - LOSS OF EMPLOYMENT [None]
  - MANIA [None]
  - NERVOUSNESS [None]
  - STRESS [None]
  - TREATMENT NONCOMPLIANCE [None]
